FAERS Safety Report 16119493 (Version 1)
Quarter: 2019Q1

REPORT INFORMATION
  Report Type: Spontaneous
  Country: FR (occurrence: FR)
  Receive Date: 20190326
  Receipt Date: 20190326
  Transmission Date: 20190418
  Serious: Yes (Other)
  Sender: FDA-Public Use
  Company Number: FR-009507513-1903FRA008666

PATIENT
  Sex: Male
  Weight: 87 kg

DRUGS (1)
  1. PEMBROLIZUMAB. [Suspect]
     Active Substance: PEMBROLIZUMAB
     Indication: MALIGNANT MELANOMA STAGE IV
     Dosage: 6 CYCLES IN TOTAL; DOSE AT 2 MG/KG
     Route: 042
     Dates: start: 20140808, end: 20141208

REACTIONS (4)
  - Toxic skin eruption [Recovering/Resolving]
  - Dermatitis bullous [Recovering/Resolving]
  - Vitiligo [Recovering/Resolving]
  - Lichenoid keratosis [Recovering/Resolving]

NARRATIVE: CASE EVENT DATE: 20141021
